FAERS Safety Report 23644653 (Version 6)
Quarter: 2024Q4

REPORT INFORMATION
  Report Type: Spontaneous
  Country: US (occurrence: US)
  Receive Date: 20240318
  Receipt Date: 20241209
  Transmission Date: 20250114
  Serious: No
  Sender: CALLIDITAS THERAPEUTICS AB
  Company Number: US-Calliditas-2024CAL00418

PATIENT
  Age: 73 Year
  Sex: Male
  Weight: 81.2 kg

DRUGS (2)
  1. TARPEYO [Suspect]
     Active Substance: BUDESONIDE
     Indication: IgA nephropathy
     Dosage: 16 MG (4MG CAPSULES) ONCE DAILY
     Route: 048
     Dates: start: 20240307
  2. CHLORTHALIDONE [Concomitant]
     Active Substance: CHLORTHALIDONE

REACTIONS (16)
  - Diarrhoea [Unknown]
  - Product residue present [Unknown]
  - Hypertension [Not Recovered/Not Resolved]
  - Swelling face [Unknown]
  - Peripheral swelling [Unknown]
  - Flushing [Unknown]
  - Night sweats [Unknown]
  - Poor quality sleep [Unknown]
  - Noninfective gingivitis [Unknown]
  - Irritability [Not Recovered/Not Resolved]
  - Depressed mood [Not Recovered/Not Resolved]
  - Contusion [Unknown]
  - Joint swelling [Unknown]
  - Weight increased [Not Recovered/Not Resolved]
  - Lipohypertrophy [Unknown]
  - Cushingoid [Not Recovered/Not Resolved]

NARRATIVE: CASE EVENT DATE: 20240307
